FAERS Safety Report 10583511 (Version 2)
Quarter: 2014Q4

REPORT INFORMATION
  Report Type: Spontaneous
  Country: US (occurrence: None)
  Receive Date: 20141112
  Receipt Date: 20141211
  Transmission Date: 20150529
  Serious: Yes (Other)
  Sender: FDA-Public Use
  Company Number: US-001423

PATIENT
  Sex: Male

DRUGS (7)
  1. SOLUTIONS FOR PARENTERAL NUTRITION [Concomitant]
     Active Substance: AMINO ACIDS\DEXTROSE\ELECTROLYTES NOS
  2. LOMOTIL [Concomitant]
     Active Substance: ATROPINE SULFATE\DIPHENOXYLATE HYDROCHLORIDE
  3. QUESTRAN [Concomitant]
     Active Substance: CHOLESTYRAMINE
  4. GATTEX [Suspect]
     Active Substance: TEDUGLUTIDE\WATER
     Indication: SHORT-BOWEL SYNDROME
     Dosage: (DF) SUBCUTEANEOUS
     Route: 058
     Dates: end: 20140903
  5. NEULASTA [Concomitant]
     Active Substance: PEGFILGRASTIM
  6. FOLIC ACID. [Concomitant]
     Active Substance: FOLIC ACID
  7. METHOTEXATE [Concomitant]

REACTIONS (3)
  - Dialysis [None]
  - Thrombosis [None]
  - Renal failure [None]
